FAERS Safety Report 9250702 (Version 1)
Quarter: 2013Q1

REPORT INFORMATION
  Report Type: Spontaneous
  Country: US (occurrence: None)
  Receive Date: 20130305
  Receipt Date: 20130305
  Transmission Date: 20140127
  Serious: Yes (Hospitalization, Other)
  Sender: FDA-Public Use
  Company Number: 163-21880-12082441

PATIENT
  Age: 69 Year
  Sex: Female
  Weight: 86.2 kg

DRUGS (2)
  1. REVLIMID [Suspect]
     Indication: PLASMA CELL MYELOMA
     Dosage: 10 MG, 21 IN 21 D, PO
     Route: 048
     Dates: start: 20120627
  2. ASPIRIN [Concomitant]

REACTIONS (6)
  - Pneumonia [None]
  - Diarrhoea [None]
  - Herpes zoster [None]
  - Rhinorrhoea [None]
  - Fatigue [None]
  - Contusion [None]
